FAERS Safety Report 6263226-0 (Version None)
Quarter: 2009Q3

REPORT INFORMATION
  Report Type: 
  Country: None (occurrence: None)
  Receive Date: 20090710
  Receipt Date: 20090706
  Transmission Date: 20100115
  Serious: Yes (Life-Threatening, Other)
  Sender: FDA-Public Use
  Company Number: JP-BRISTOL-MYERS SQUIBB COMPANY-14690226

PATIENT
  Age: 73 Year
  Sex: Male

DRUGS (5)
  1. BLEOMYCIN HCL [Suspect]
     Indication: PENIS CARCINOMA STAGE II
     Dosage: INITIATED ON 13FEB09.DURATION:3D;ALSO RECEIVED ON 16FEB09 AND 18FEB09 (15MG IV).
     Route: 042
     Dates: start: 20090218, end: 20090218
  2. ROPION [Suspect]
     Indication: PYREXIA
     Route: 042
     Dates: start: 20090218, end: 20090218
  3. PIPERACILLIN SODIUM [Suspect]
     Route: 042
     Dates: start: 20090202, end: 20090216
  4. HYPEN [Suspect]
     Route: 048
     Dates: start: 20090219
  5. RADIOTHERAPY [Concomitant]
     Dates: start: 20090217, end: 20090331

REACTIONS (1)
  - RENAL FAILURE ACUTE [None]
